FAERS Safety Report 20775848 (Version 1)
Quarter: 2022Q2

REPORT INFORMATION
  Report Type: Spontaneous
  Country: US (occurrence: US)
  Receive Date: 20220502
  Receipt Date: 20220502
  Transmission Date: 20220720
  Serious: No
  Sender: FDA-Public Use
  Company Number: US-Fresenius Medical Care Renal Therapies Group-FMC-2204-000516

PATIENT
  Age: 58 Year
  Sex: Female
  Weight: 54.5 kg

DRUGS (1)
  1. DELFLEX [Suspect]
     Active Substance: CALCIUM CHLORIDE\DEXTROSE\MAGNESIUM CHLORIDE\SODIUM CHLORIDE\SODIUM LACTATE
     Indication: End stage renal disease
     Dosage: FILLS = 5; FILL VOLUME = 2000 ML; LAST FILL VOLUME = 500ML; TOTAL VOLUME = 8500ML
     Route: 033
     Dates: start: 20220301

REACTIONS (2)
  - Nausea [Recovered/Resolved]
  - Abdominal distension [Recovered/Resolved]
